FAERS Safety Report 8307062-X (Version None)
Quarter: 2012Q2

REPORT INFORMATION
  Report Type: 
  Country: None (occurrence: None)
  Receive Date: 20120424
  Receipt Date: 20120418
  Transmission Date: 20120825
  Serious: Yes (Hospitalization)
  Sender: FDA-Public Use
  Company Number: FR-ASTELLAS-2012EU002930

PATIENT
  Age: 19 Month
  Sex: Male
  Weight: 12.1 kg

DRUGS (3)
  1. IMURAN [Suspect]
     Indication: FOETAL EXPOSURE DURING PREGNANCY
     Dosage: 1 DF, UID/QD
     Route: 064
  2. PREDNISONE TAB [Suspect]
     Indication: FOETAL EXPOSURE DURING PREGNANCY
     Dosage: 1 DF, UID/QD
     Route: 064
  3. PROGRAF [Suspect]
     Indication: FOETAL EXPOSURE DURING PREGNANCY
     Dosage: 2 DF, BID
     Route: 064

REACTIONS (3)
  - DEVELOPMENTAL DELAY [None]
  - BLOOD ALKALINE PHOSPHATASE INCREASED [None]
  - CONVULSION [None]
